FAERS Safety Report 4780467-X (Version None)
Quarter: 2005Q3

REPORT INFORMATION
  Report Type: 
  Country: None (occurrence: None)
  Receive Date: 20050926
  Receipt Date: 20050912
  Transmission Date: 20060218
  Serious: Yes (Hospitalization, Other)
  Sender: FDA-Public Use
  Company Number: 2005127125

PATIENT
  Sex: Female
  Weight: 125.1928 kg

DRUGS (3)
  1. DILANTIN [Suspect]
     Indication: EPILEPSY
     Dosage: 400 MG (200 MG, 2 IN 1 D), ORAL
     Route: 048
  2. AMBIEN [Suspect]
     Indication: SLEEP DISORDER
     Dates: start: 19990101, end: 19990101
  3. PREVACID [Concomitant]

REACTIONS (9)
  - ASTHENIA [None]
  - CONVULSION [None]
  - COORDINATION ABNORMAL [None]
  - DRUG INTERACTION [None]
  - GINGIVAL DISORDER [None]
  - INITIAL INSOMNIA [None]
  - MEMORY IMPAIRMENT [None]
  - MUSCLE TWITCHING [None]
  - SLEEP DISORDER [None]
